FAERS Safety Report 10439107 (Version 1)
Quarter: 2014Q3

REPORT INFORMATION
  Report Type: Spontaneous
  Country: US (occurrence: US)
  Receive Date: 20140908
  Receipt Date: 20140908
  Transmission Date: 20150326
  Serious: No
  Sender: FDA-Public Use
  Company Number: US-BRISTOL-MYERS SQUIBB COMPANY-19927177

PATIENT
  Sex: Female

DRUGS (1)
  1. ABILIFY [Suspect]
     Active Substance: ARIPIPRAZOLE
     Dosage: DOSE DECREASED ON 22-OCT-2013
     Dates: start: 20130910, end: 20131120

REACTIONS (2)
  - Akathisia [Recovering/Resolving]
  - Tremor [Not Recovered/Not Resolved]
